FAERS Safety Report 10333391 (Version 1)
Quarter: 2014Q3

REPORT INFORMATION
  Report Type: Spontaneous
  Country: US (occurrence: US)
  Receive Date: 20140722
  Receipt Date: 20140722
  Transmission Date: 20150326
  Serious: No
  Sender: FDA-Public Use
  Company Number: US-SANOFI-AVENTIS-2013SA082647

PATIENT
  Age: 51 Year
  Sex: Male

DRUGS (1)
  1. AMBIEN [Suspect]
     Active Substance: ZOLPIDEM TARTRATE
     Route: 065

REACTIONS (11)
  - Swelling [Unknown]
  - Abasia [Unknown]
  - Contusion [Unknown]
  - Fall [Unknown]
  - Fear [Unknown]
  - Thinking abnormal [Unknown]
  - Haemorrhage [Unknown]
  - Abnormal dreams [Unknown]
  - Feeling abnormal [Unknown]
  - Somnambulism [Unknown]
  - Accidental overdose [Unknown]
